FAERS Safety Report 7051603-X (Version None)
Quarter: 2010Q4

REPORT INFORMATION
  Report Type: 
  Country: None (occurrence: None)
  Receive Date: 20101012
  Receipt Date: 20101004
  Transmission Date: 20110411
  Serious: Yes (Hospitalization)
  Sender: FDA-Public Use
  Company Number: UTC-001514

PATIENT
  Age: 31 Year
  Sex: Female
  Weight: 64 kg

DRUGS (9)
  1. REMODULIN [Suspect]
     Dosage: 171.36 UG/KG (0.119 UG/KG,1 IN 1 MIN),SUBCUTANEOUS
     Route: 058
     Dates: start: 20091203
  2. TRACLEER [Concomitant]
  3. KLONOPIN [Concomitant]
  4. LASIX [Concomitant]
  5. REVATIO (SILDENAFI CITRATE) [Concomitant]
  6. COUMADIN [Concomitant]
  7. PAXIL [Concomitant]
  8. TEGRETOL [Concomitant]
  9. OXYCODONE HCL [Concomitant]

REACTIONS (1)
  - INFUSION SITE INFECTION [None]
